FAERS Safety Report 4986330-3 (Version None)
Quarter: 2006Q2

REPORT INFORMATION
  Report Type: 
  Country: None (occurrence: None)
  Receive Date: 20060428
  Receipt Date: 20060420
  Transmission Date: 20061013
  Serious: Yes (Life-Threatening, Hospitalization, Disabling)
  Sender: FDA-Public Use
  Company Number: FR-JNJFOC-20060404551

PATIENT
  Sex: Female

DRUGS (6)
  1. DAKTARIN [Suspect]
     Indication: CYSTITIS
  2. DAKTARIN [Suspect]
  3. GYNO-PEVARYL [Suspect]
     Indication: CYSTITIS
     Route: 067
  4. GYNO-PEVARYL [Suspect]
     Route: 067
  5. PIPRAM [Suspect]
     Indication: CYSTITIS
  6. PIPRAM [Suspect]

REACTIONS (1)
  - TOXIC EPIDERMAL NECROLYSIS [None]
